FAERS Safety Report 10006756 (Version 1)
Quarter: 2014Q1

REPORT INFORMATION
  Report Type: Spontaneous
  Country: US (occurrence: None)
  Receive Date: 20140228
  Receipt Date: 20140228
  Transmission Date: 20141002
  Serious: Yes (Other)
  Sender: FDA-Public Use
  Company Number: 225188

PATIENT
  Age: 71 Year
  Sex: Female

DRUGS (1)
  1. PICATO [Suspect]
     Indication: PRECANCEROUS CELLS PRESENT
     Dosage: (1 IN 1 D), TOPICAL
     Route: 061
     Dates: start: 20131129

REACTIONS (3)
  - Application site dryness [None]
  - Application site pruritus [None]
  - Application site exfoliation [None]
